FAERS Safety Report 20088669 (Version 1)
Quarter: 2021Q4

REPORT INFORMATION
  Report Type: Spontaneous
  Country: NP (occurrence: NP)
  Receive Date: 20211119
  Receipt Date: 20211119
  Transmission Date: 20220304
  Serious: Yes (Other)
  Sender: FDA-Public Use
  Company Number: NP-LUPIN PHARMACEUTICALS INC.-2021-22679

PATIENT
  Age: 25 Year
  Sex: Female

DRUGS (2)
  1. METOCLOPRAMIDE [Suspect]
     Active Substance: METOCLOPRAMIDE
     Indication: Acid peptic disease
     Dosage: 10 MILLIGRAM, TID (TO BE TAKEN FOR 7 DAYS)
     Route: 048
     Dates: start: 20191223, end: 20191224
  2. PANTOPRAZOLE [Concomitant]
     Active Substance: PANTOPRAZOLE
     Indication: Acid peptic disease
     Dosage: 40 MILLIGRAM, QD (FOR 7 DAYS)
     Route: 065
     Dates: start: 20191223

REACTIONS (1)
  - Dystonia [Recovered/Resolved]

NARRATIVE: CASE EVENT DATE: 20191223
